FAERS Safety Report 10207100 (Version 4)
Quarter: 2014Q3

REPORT INFORMATION
  Report Type: Report from Study
  Country: US (occurrence: None)
  Receive Date: 20140613
  Receipt Date: 20140902
  Transmission Date: 20150326
  Serious: Yes (Hospitalization, Other)
  Sender: FDA-Public Use
  Company Number: 2014SGN00576

PATIENT
  Age: 69 Year
  Sex: Male
  Weight: 95.5 kg

DRUGS (7)
  1. CYCLOPHOSPHAMIDE. [Suspect]
     Active Substance: CYCLOPHOSPHAMIDE
     Indication: DIFFUSE LARGE B-CELL LYMPHOMA
     Dosage: 750 MG/M2, Q21D, INTRAVENOUS
     Route: 042
     Dates: start: 20140304, end: 20140417
  2. DOXORUBICIN [Suspect]
     Active Substance: DOXORUBICIN
     Indication: DIFFUSE LARGE B-CELL LYMPHOMA
     Dosage: 50 MG/M2, Q21D, INTRAVENOUS
     Route: 042
     Dates: start: 20140304, end: 20140417
  3. BRENTUXIMAB VEDOTIN [Suspect]
     Active Substance: BRENTUXIMAB VEDOTIN
     Indication: DIFFUSE LARGE B-CELL LYMPHOMA
     Dosage: 1.8 MG/KG, Q21D, INTRAVENOUS
     Route: 042
     Dates: start: 20140304, end: 20140417
  4. VINCRISTINE [Suspect]
     Active Substance: VINCRISTINE
     Indication: DIFFUSE LARGE B-CELL LYMPHOMA
     Dosage: 1.4 MG/M2, Q21D, INTRAVENOUS
     Route: 042
     Dates: start: 20140304, end: 20140417
  5. ASPIRIN (ACETYLSALICYLIC ACID) [Concomitant]
     Active Substance: ASPIRIN
  6. PREDNISONE. [Suspect]
     Active Substance: PREDNISONE
     Indication: DIFFUSE LARGE B-CELL LYMPHOMA
     Dosage: 100 MG, QCYCLE, ORAL
     Route: 048
     Dates: start: 20140304, end: 20140421
  7. RITUXIMAB [Suspect]
     Active Substance: RITUXIMAB
     Indication: DIFFUSE LARGE B-CELL LYMPHOMA
     Dosage: 375 MG/M2, Q21D, INTRAVENOUS
     Route: 042
     Dates: start: 20140304, end: 20140417

REACTIONS (10)
  - Acute respiratory distress syndrome [None]
  - Sepsis [None]
  - Dehydration [None]
  - Hypotension [None]
  - Pneumonitis [None]
  - Hypovolaemia [None]
  - Respiratory failure [None]
  - Toxicity to various agents [None]
  - Hypoxia [None]
  - Pneumonia [None]

NARRATIVE: CASE EVENT DATE: 20140508
